FAERS Safety Report 15667840 (Version 3)
Quarter: 2021Q1

REPORT INFORMATION
  Report Type: Report from Study
  Country: JP (occurrence: JP)
  Receive Date: 20181128
  Receipt Date: 20210124
  Transmission Date: 20210419
  Serious: Yes (Hospitalization)
  Sender: FDA-Public Use
  Company Number: JP-BEH-2018097104

PATIENT
  Age: 83 Year
  Sex: Male
  Weight: 41.1 kg

DRUGS (24)
  1. LIXIANA [Concomitant]
     Active Substance: EDOXABAN TOSYLATE
     Indication: ATRIAL FIBRILLATION
     Dosage: 30 MG, QD (AFTER BREAKFAST)
     Route: 048
     Dates: start: 20180620
  2. SOLDEM 1 [Concomitant]
     Active Substance: DEXTROSE\SODIUM CHLORIDE\SODIUM LACTATE
     Dosage: 500 ML, RATE OF ADMINISTRATION (PER HR): 20.833ML, REPLACEMENT CYCLE: 24 HR
     Route: 050
     Dates: start: 20180617, end: 20180618
  3. CARBOCISTEINE [Concomitant]
     Active Substance: CARBOCYSTEINE
     Dosage: UNK UNK, TID (8 HOURS AFTER BREAKFAST/LUNCH/DINNER)
     Route: 048
     Dates: start: 20180617, end: 20180627
  4. MIYA?BM [Concomitant]
     Active Substance: CLOSTRIDIUM BUTYRICUM SPORES STRAIN M-55
     Indication: PROPHYLAXIS AGAINST DIARRHOEA
     Dosage: 2 DF, TID (8 HOURS AFTER BREAKFAST/LUNCH/DINNER)
     Route: 048
     Dates: start: 20180617, end: 20180627
  5. CALONAL [Concomitant]
     Active Substance: ACETAMINOPHEN
     Indication: PNEUMONIA ASPIRATION
     Dosage: 3 DF, PRN (AT THE ONSET OF PYREXIA AND PAIN (UP TO 3 X A DAY WITH THE INTERVAL OF MORE THAN 6 HOURS)
     Route: 048
     Dates: start: 20180616, end: 20180622
  6. LANSOPRAZOLE. [Concomitant]
     Active Substance: LANSOPRAZOLE
     Indication: PROPHYLAXIS
     Dosage: UNK, BID (AFTER BREAKFAST)
     Route: 048
     Dates: start: 20180617, end: 20180627
  7. OMEPRAZOLE                         /00661202/ [Concomitant]
     Active Substance: OMEPRAZOLE SODIUM
     Indication: PROPHYLAXIS
     Dosage: 20 MG, BID (12 HOURS IN THE MORNING AND BEFORE SLEEP), ISOTONIC SODIUM CHLORIDE SOLUTION 20ML
     Route: 050
     Dates: start: 20180616, end: 20180616
  8. KAYTWO N [Concomitant]
     Active Substance: MENATETRENONE
     Dosage: 10 MG, ONE DAY IN THE MORNING
     Route: 050
     Dates: start: 20180618, end: 20180620
  9. HEPARIN SODIUM. [Concomitant]
     Active Substance: HEPARIN SODIUM
     Dosage: 5000 IU, RATE OF ADMINISTRATION: 2.292 ML/H, REPLACEMENT CYCLE: 24 HOURS
     Route: 050
     Dates: start: 20180618, end: 20180619
  10. SEISHOKU [Concomitant]
     Active Substance: SODIUM CHLORIDE
     Dosage: 100 ML, BID (12HOURS 40ML, INJECTION,12HOURS IN THE MORNING AND BEFORE SLEEP 50 ML)
     Route: 050
     Dates: start: 20180618, end: 20180619
  11. TELEMINSOFT [Concomitant]
     Active Substance: BISACODYL
     Indication: CONSTIPATION
     Dosage: 1 DF, PRN (AT THE ONSET OF CONSTIPATION)
     Route: 054
     Dates: start: 20180616, end: 20180622
  12. KAYTWO [Concomitant]
     Active Substance: MENATETRENONE
     Dosage: 10 MG, QD
     Route: 065
     Dates: start: 20180618, end: 20180620
  13. WARFARIN                           /00014803/ [Concomitant]
     Active Substance: WARFARIN
     Indication: ATRIAL FIBRILLATION
     Dosage: 2 MG, QD
     Route: 048
     Dates: end: 20180615
  14. MEROPENEM. [Concomitant]
     Active Substance: MEROPENEM
     Dosage: 0.5 G, BID (12 HOURS), RATE OF ADMINISTRATION: 200ML/H, REPLACEMENT CYCLE: 0.5 HOURS
     Route: 050
     Dates: start: 20180616, end: 20180620
  15. SEISHOKU [Concomitant]
     Active Substance: SODIUM CHLORIDE
     Dosage: 100 ML, BID (12HOURS 40ML, INJECTION,12HOURS IN THE MORNING AND BEFORE SLEEP 50 ML)
     Route: 050
     Dates: start: 20180616, end: 20180616
  16. BERIPLEX P/N [Suspect]
     Active Substance: COAGULATION FACTOR IX HUMAN\COAGULATION FACTOR VII HUMAN\COAGULATION FACTOR X HUMAN\PROTEIN C\PROTEIN S HUMAN\PROTHROMBIN
     Indication: HAEMORRHAGE
     Dosage: 2500 IU, UNK
     Route: 042
     Dates: start: 20180616
  17. KAYTWO [Concomitant]
     Active Substance: MENATETRENONE
     Indication: PROCOAGULANT THERAPY
     Dosage: 20 MG, QD
     Route: 065
     Dates: start: 20180616, end: 20180617
  18. FUROSEMIDE. [Concomitant]
     Active Substance: FUROSEMIDE
     Indication: CARDIAC FAILURE
     Dosage: 20 MG, ONE DAY IN THE MORNING
     Route: 050
     Dates: start: 20180617, end: 20180621
  19. BERIPLEX P/N [Suspect]
     Active Substance: COAGULATION FACTOR IX HUMAN\COAGULATION FACTOR VII HUMAN\COAGULATION FACTOR X HUMAN\PROTEIN C\PROTEIN S HUMAN\PROTHROMBIN
     Indication: HAEMORRHAGE
     Dosage: 2500 IU, UNK
     Route: 042
     Dates: start: 20180616
  20. SEISHOKU [Concomitant]
     Active Substance: SODIUM CHLORIDE
     Dosage: 100 ML, BID (12 HOURS 40ML, INJECTION,12 HOURS IN THE MORNING AND BEFORE SLEEP 50 ML)
     Route: 050
     Dates: start: 20180616, end: 20180620
  21. KAYTWO N [Concomitant]
     Active Substance: MENATETRENONE
     Dosage: 20 MG, ONE DAY IN THE MORNING
     Route: 050
     Dates: start: 20180617, end: 20180617
  22. SODIUM PHOSPHATE DIBASIC DIHYDRATE [Concomitant]
     Dosage: 20 ML, UNK
     Route: 065
     Dates: start: 20180618
  23. PICOSULFATE [Concomitant]
     Active Substance: SODIUM PICOSULFATE
     Indication: CONSTIPATION
     Dosage: 1 DF, PRN (AS NECESSARY AT THE ONSET OF CONSTIPATION)
     Route: 048
     Dates: start: 20180616, end: 20180622
  24. ADEFURONIC [Concomitant]
     Active Substance: DICLOFENAC SODIUM
     Indication: PNEUMONIA ASPIRATION
     Dosage: 1 DF, PRN (AT THE ONSET OF PYREXIA AND PAIN)
     Route: 054
     Dates: start: 20180616, end: 20180622

REACTIONS (1)
  - Arterial occlusive disease [Recovering/Resolving]

NARRATIVE: CASE EVENT DATE: 20180618
